FAERS Safety Report 22188112 (Version 1)
Quarter: 2023Q2

REPORT INFORMATION
  Report Type: Spontaneous
  Country: NO (occurrence: NO)
  Receive Date: 20230408
  Receipt Date: 20230408
  Transmission Date: 20230722
  Serious: Yes (Other)
  Sender: FDA-Public Use
  Company Number: None

PATIENT
  Age: 45 Year
  Sex: Male

DRUGS (6)
  1. EMTRICITABINE [Suspect]
     Active Substance: EMTRICITABINE
     Indication: HIV infection
     Dosage: 1 DOSAGE FORMS DAILY; 1 DOSAGE FORM, QD
     Route: 065
     Dates: start: 20190524, end: 20210924
  2. RALTEGRAVIR [Suspect]
     Active Substance: RALTEGRAVIR
     Indication: HIV infection
     Dosage: 1 DOSAGE FORMS DAILY; 1 DOSAGE FORM, QD
     Route: 065
     Dates: start: 20190524, end: 20210924
  3. ISENTRESS [Suspect]
     Active Substance: RALTEGRAVIR POTASSIUM
     Indication: HIV test positive
     Dosage: 800 MG
     Route: 065
     Dates: start: 20190524, end: 20210924
  4. TRIUMEQ [Suspect]
     Active Substance: ABACAVIR SULFATE\DOLUTEGRAVIR SODIUM\LAMIVUDINE
     Indication: HIV test positive
     Dosage: 1 DOSAGE FORMS DAILY; 1 DOSAGE FORM, QD, FOR ACTIVE INGREDIENT ABACAVIR THE STRENGTH IS 600 MILLIGRA
     Route: 065
     Dates: start: 20210924
  5. EMTRICITABINE\TENOFOVIR DISOPROXIL [Suspect]
     Active Substance: EMTRICITABINE\TENOFOVIR DISOPROXIL
     Indication: HIV test positive
     Dosage: 1 DOSAGE FORMS DAILY; 1 DOSAGE FORM, QD, FOR ACTIVE INGREDIENT TENOFOVIR DISOPROXIL THE STRENGTH IS
     Route: 065
     Dates: start: 20190524, end: 20210924
  6. SYMBICORT [Concomitant]
     Active Substance: BUDESONIDE\FORMOTEROL FUMARATE DIHYDRATE
     Indication: Asthma
     Dosage: 1 DOSAGE FORM,FOR ACTIVE INGREDIENT BUDESONIDE THE STRENGTH IS 160 MICROGRAM .FOR ACTIVE INGREDIENT
     Route: 065
     Dates: start: 20180101

REACTIONS (1)
  - Osteonecrosis [Not Recovered/Not Resolved]

NARRATIVE: CASE EVENT DATE: 20220401
